FAERS Safety Report 7904437-5 (Version None)
Quarter: 2011Q4

REPORT INFORMATION
  Report Type: 
  Country: None (occurrence: None)
  Receive Date: 20111109
  Receipt Date: 20111104
  Transmission Date: 20120403
  Serious: Yes (Hospitalization, Congenital Anomaly, Other)
  Sender: FDA-Public Use
  Company Number: US-PFIZER INC-2011159382

PATIENT
  Sex: Female
  Weight: 2.7 kg

DRUGS (4)
  1. ZOLOFT [Suspect]
     Dosage: 100 MG, UNK
     Dates: start: 20060119
  2. ZOLOFT [Suspect]
     Dosage: 100 MG, UNK
     Dates: start: 20060209
  3. ZOLOFT [Suspect]
     Dosage: 75 MG, UNK
     Dates: start: 20060123
  4. ZOLOFT [Suspect]
     Indication: ANXIETY
     Dosage: 75 MG, UNK
     Route: 064
     Dates: start: 20051223

REACTIONS (3)
  - MATERNAL EXPOSURE TIMING UNSPECIFIED [None]
  - CONGENITAL SPINAL CORD ANOMALY [None]
  - NEURAL TUBE DEFECT [None]
